FAERS Safety Report 7987301-5 (Version None)
Quarter: 2011Q4

REPORT INFORMATION
  Report Type: 
  Country: None (occurrence: None)
  Receive Date: 20111216
  Receipt Date: 20110331
  Transmission Date: 20120403
  Serious: No
  Sender: FDA-Public Use
  Company Number: US-BRISTOL-MYERS SQUIBB COMPANY-15649411

PATIENT
  Age: 40 Year
  Sex: Female

DRUGS (2)
  1. ABILIFY [Suspect]
     Indication: SCHIZOPHRENIA
  2. SAPHRIS [Concomitant]

REACTIONS (2)
  - EXTRAPYRAMIDAL DISORDER [None]
  - FLAT AFFECT [None]
